FAERS Safety Report 4682110-7 (Version None)
Quarter: 2005Q2

REPORT INFORMATION
  Report Type: 
  Country: None (occurrence: None)
  Receive Date: 20050602
  Receipt Date: 20050517
  Transmission Date: 20051028
  Serious: Yes (Hospitalization)
  Sender: FDA-Public Use
  Company Number: JPN-2002-007862

PATIENT
  Age: 22 Year
  Sex: Male
  Weight: 62 kg

DRUGS (8)
  1. BETASERON [Suspect]
     Indication: RELAPSING-REMITTING MULTIPLE SCLEROSIS
     Dosage: 8 MIU EVERY 2D SUBCUTANEOUS
     Route: 058
     Dates: start: 20010904
  2. ALFAROL (ALFACALCIDOL) [Concomitant]
  3. ASPARA-CA(ASPARTATE CALCIUM) [Concomitant]
  4. SELBEX (TEPRENONE) [Concomitant]
  5. CLONAZEPAM [Concomitant]
  6. ALOSENN (ACHILLEA, RUBIA ROOT TINCTURE, SENNA FRUIT, SENNA LEAF, TARAX [Concomitant]
  7. TIZANIDINE HCL [Concomitant]
  8. DEPAKENE [Concomitant]

REACTIONS (6)
  - ABASIA [None]
  - CEREBELLAR SYNDROME [None]
  - CONVULSION [None]
  - HEMIPLEGIA [None]
  - MENINGITIS ASEPTIC [None]
  - MULTIPLE SCLEROSIS RELAPSE [None]
